FAERS Safety Report 18373699 (Version 2)
Quarter: 2021Q4

REPORT INFORMATION
  Report Type: Spontaneous
  Country: NL (occurrence: NL)
  Receive Date: 20201013
  Receipt Date: 20211105
  Transmission Date: 20220303
  Serious: Yes (Other)
  Sender: FDA-Public Use
  Company Number: NL-STADA-197471

PATIENT
  Sex: Female

DRUGS (4)
  1. OXYCODONE [Suspect]
     Active Substance: OXYCODONE
     Indication: Skin ulcer
     Dosage: 20 MILLIGRAM, TWO TIMES A DAY (40 MG ONCE A DAY)
     Route: 065
     Dates: start: 2018
  2. MORPHINE [Suspect]
     Active Substance: MORPHINE
     Indication: Pain
     Dosage: 1 DOSAGE FORM, ONCE A DAY (1 DF, QD)
     Route: 065
  3. MORPHINE [Suspect]
     Active Substance: MORPHINE
     Dosage: 2 DOSAGE FORM, ONCE A DAY (2 DF, QD)
     Route: 065
  4. MORPHINE HYDROCHLORIDE [Suspect]
     Active Substance: MORPHINE HYDROCHLORIDE
     Indication: Pain
     Dosage: 30 MILLIGRAM, TWO TIMES A DAY (60 MG ONCE A DAY)
     Route: 065

REACTIONS (9)
  - Confusional state [Unknown]
  - Dementia [Not Recovered/Not Resolved]
  - Dizziness [Unknown]
  - Fall [Unknown]
  - Feeling abnormal [Unknown]
  - Hypersomnia [Unknown]
  - Medication error [Unknown]
  - Product prescribing error [Unknown]
  - Product use in unapproved indication [Unknown]

NARRATIVE: CASE EVENT DATE: 20190629
